FAERS Safety Report 25336880 (Version 1)
Quarter: 2025Q2

REPORT INFORMATION
  Report Type: Spontaneous
  Country: CA (occurrence: CA)
  Receive Date: 20250520
  Receipt Date: 20250520
  Transmission Date: 20250716
  Serious: Yes (Death)
  Sender: PFIZER
  Company Number: CA-PFIZER INC-202500104070

PATIENT
  Age: 40 Year
  Sex: Female
  Weight: 104 kg

DRUGS (20)
  1. FRAGMIN [Suspect]
     Active Substance: DALTEPARIN SODIUM
     Indication: Deep vein thrombosis
     Dosage: 100 IU/KG, 2X/DAY
     Route: 058
  2. ACETAMINOPHEN [Concomitant]
     Active Substance: ACETAMINOPHEN
  3. ALLOPURINOL [Concomitant]
     Active Substance: ALLOPURINOL
  4. CYTARABINE [Concomitant]
     Active Substance: CYTARABINE
  5. DEXAMETHASONE [Concomitant]
     Active Substance: DEXAMETHASONE
     Route: 065
  6. DIPHENHYDRAMINE [Concomitant]
     Active Substance: DIPHENHYDRAMINE
  7. FASTURTEC [Concomitant]
     Active Substance: RASBURICASE
  8. HYDROCORTISONE [Concomitant]
     Active Substance: HYDROCORTISONE
  9. IDARUBICIN [Concomitant]
     Active Substance: IDARUBICIN
  10. LORAZEPAM [Concomitant]
     Active Substance: LORAZEPAM
     Route: 065
  11. METHOTREXATE [Concomitant]
     Active Substance: METHOTREXATE
  12. METHYLPREDNISOLONE [Concomitant]
     Active Substance: METHYLPREDNISOLONE
  13. METOCLOPRAMIDE [Concomitant]
     Active Substance: METOCLOPRAMIDE
  14. MORPHINE [Concomitant]
     Active Substance: MORPHINE
  15. MYLOTARG [Concomitant]
     Active Substance: GEMTUZUMAB OZOGAMICIN
  16. NITROFURANTOIN [Concomitant]
     Active Substance: NITROFURANTOIN
  17. ONDANSETRON [Concomitant]
     Active Substance: ONDANSETRON
  18. PIPERACILLIN SODIUM\TAZOBACTAM SODIUM [Concomitant]
     Active Substance: PIPERACILLIN SODIUM\TAZOBACTAM SODIUM
  19. POLYETHYLENE GLYCOLS [Concomitant]
     Active Substance: POLYETHYLENE GLYCOLS
  20. PROCHLORPERAZINE [Concomitant]
     Active Substance: PROCHLORPERAZINE

REACTIONS (2)
  - Retroperitoneal haemorrhage [Fatal]
  - Shock haemorrhagic [Fatal]
